FAERS Safety Report 5927642-6 (Version None)
Quarter: 2008Q4

REPORT INFORMATION
  Report Type: 
  Country: None (occurrence: None)
  Receive Date: 20081021
  Receipt Date: 20081021
  Transmission Date: 20090506
  Serious: Yes (Life-Threatening)
  Sender: FDA-Public Use
  Company Number: None

PATIENT
  Sex: Male
  Weight: 117.9352 kg

DRUGS (1)
  1. VIOXX [Suspect]
     Indication: ARTHRITIS

REACTIONS (2)
  - DEEP VEIN THROMBOSIS [None]
  - PRODUCT QUALITY ISSUE [None]
